FAERS Safety Report 9223584 (Version 1)
Quarter: 2013Q2

REPORT INFORMATION
  Report Type: Spontaneous
  Country: US (occurrence: US)
  Receive Date: 20130410
  Receipt Date: 20130410
  Transmission Date: 20140414
  Serious: Yes (Hospitalization)
  Sender: FDA-Public Use
  Company Number: US-GLAXOSMITHKLINE-A1019470A

PATIENT
  Age: 14 Year
  Sex: Female

DRUGS (1)
  1. LAMOTRIGINE [Suspect]
     Indication: INTENTIONAL DRUG MISUSE
     Route: 002
     Dates: start: 20121208, end: 20121208

REACTIONS (3)
  - Poisoning [Unknown]
  - Intentional drug misuse [Unknown]
  - Abnormal behaviour [Unknown]
